FAERS Safety Report 11091452 (Version 3)
Quarter: 2015Q4

REPORT INFORMATION
  Report Type: Report from Study
  Country: US (occurrence: US)
  Receive Date: 20150505
  Receipt Date: 20151123
  Transmission Date: 20160304
  Serious: Yes (Hospitalization, Other)
  Sender: FDA-Public Use
  Company Number: US-GLAXOSMITHKLINE-US2015059238

PATIENT
  Age: 53 Year
  Sex: Male
  Weight: 92.5 kg

DRUGS (3)
  1. TRAMETINIB [Suspect]
     Active Substance: TRAMETINIB
     Dosage: 1.5 MG, QD
     Route: 048
     Dates: start: 20150401, end: 20150423
  2. TRAMETINIB [Suspect]
     Active Substance: TRAMETINIB
     Indication: RECTAL ADENOCARCINOMA
     Dosage: 2 MG, QD
     Route: 048
     Dates: start: 20150319
  3. PALBOCICLIB [Suspect]
     Active Substance: PALBOCICLIB
     Indication: RECTAL ADENOCARCINOMA
     Dosage: 100 MG, CYC
     Route: 048
     Dates: start: 20150319, end: 20150423

REACTIONS (1)
  - Hypoxia [Recovered/Resolved with Sequelae]

NARRATIVE: CASE EVENT DATE: 20150423
